FAERS Safety Report 23231203 (Version 3)
Quarter: 2024Q1

REPORT INFORMATION
  Report Type: Spontaneous
  Country: US (occurrence: US)
  Receive Date: 20231127
  Receipt Date: 20240116
  Transmission Date: 20240409
  Serious: Yes (Hospitalization)
  Sender: FDA-Public Use
  Company Number: US-INCYTE CORPORATION-2023IN012302

PATIENT

DRUGS (2)
  1. JAKAFI [Suspect]
     Active Substance: RUXOLITINIB
     Dosage: UNK
     Route: 065
  2. VONJO [Concomitant]
     Active Substance: PACRITINIB
     Indication: Product used for unknown indication
     Dosage: 100 MILLIGRAM, BID
     Route: 065

REACTIONS (2)
  - Dyspnoea [Unknown]
  - Headache [Unknown]
